FAERS Safety Report 12437198 (Version 1)
Quarter: 2016Q2

REPORT INFORMATION
  Report Type: Spontaneous
  Country: US (occurrence: None)
  Receive Date: 20160603
  Receipt Date: 20160603
  Transmission Date: 20160815
  Serious: No
  Sender: FDA-Public Use
  Company Number: None

PATIENT
  Age: 12 Year
  Sex: Female
  Weight: 68 kg

DRUGS (3)
  1. ACNEFREE DAILY SKIN THERAPY ACNE PADS [Suspect]
     Active Substance: SALICYLIC ACID
     Indication: ACNE
     Dosage: 90 PADS, ONCE A DAY, APPLIED TO A SURFACE, USUALLY THE SKIN
     Dates: start: 20160529, end: 20160601
  2. BENADRYL [Concomitant]
     Active Substance: DIPHENHYDRAMINE HYDROCHLORIDE
  3. IBUPROFEN. [Concomitant]
     Active Substance: IBUPROFEN

REACTIONS (8)
  - Erythema [None]
  - Swelling [None]
  - Emotional disorder [None]
  - Pain [None]
  - Pruritus [None]
  - Swelling face [None]
  - Application site erythema [None]
  - Skin exfoliation [None]

NARRATIVE: CASE EVENT DATE: 20160531
